FAERS Safety Report 11803335 (Version 4)
Quarter: 2016Q1

REPORT INFORMATION
  Report Type: Spontaneous
  Country: JP (occurrence: JP)
  Receive Date: 20151204
  Receipt Date: 20160115
  Transmission Date: 20160525
  Serious: Yes (Hospitalization, Other)
  Sender: FDA-Public Use
  Company Number: JP-PFIZER INC-2015388392

PATIENT
  Age: 64 Year
  Sex: Male

DRUGS (14)
  1. GASTER [Concomitant]
     Active Substance: FAMOTIDINE
     Indication: GASTRITIS
     Dosage: 20 MG, 1X/DAY
     Route: 048
  2. DECADRON [Concomitant]
     Active Substance: DEXAMETHASONE
     Indication: LYMPHOMA
     Dosage: 3 MG, 2X/DAY
     Route: 048
  3. LYRICA [Suspect]
     Active Substance: PREGABALIN
     Indication: FACIAL NEURALGIA
     Dosage: 25 MG, 2X/DAY
     Route: 048
     Dates: start: 20151009, end: 20151109
  4. YOKUKANSAN [Concomitant]
     Active Substance: HERBALS
     Indication: AFFECTIVE DISORDER
     Dosage: 2.5 G, 1X/DAY
     Route: 048
     Dates: start: 20151027
  5. ROZEREM [Concomitant]
     Active Substance: RAMELTEON
     Indication: INSOMNIA
     Dosage: 8 MG, 1X/DAY
     Route: 048
  6. SELENICA R [Concomitant]
     Active Substance: VALPROATE SODIUM
     Indication: EPILEPSY
     Dosage: 200 MG, 1X/DAY
     Route: 048
  7. MAGMITT [Concomitant]
     Active Substance: MAGNESIUM OXIDE
     Indication: CONSTIPATION
     Dosage: 500 MG, 1X/DAY
     Route: 048
  8. ACETAMINOPHEN. [Concomitant]
     Active Substance: ACETAMINOPHEN
     Indication: EYE PAIN
     Dosage: UNK
     Dates: start: 20151006
  9. ABILIFY [Concomitant]
     Active Substance: ARIPIPRAZOLE
     Indication: AFFECTIVE DISORDER
     Dosage: 12 MG, 1X/DAY
     Route: 048
     Dates: start: 20151009
  10. RISPERDAL [Concomitant]
     Active Substance: RISPERIDONE
     Indication: AFFECTIVE DISORDER
     Dosage: 1 MG, 1X/DAY
     Route: 048
  11. PHENOBAL [Concomitant]
     Active Substance: PHENOBARBITAL
     Indication: EPILEPSY
     Dosage: 30 MG, 1X/DAY
     Route: 048
  12. PHENOBAL [Concomitant]
     Active Substance: PHENOBARBITAL
     Dosage: 60 MG, 1X/DAY
     Route: 048
  13. PURSENNID [Concomitant]
     Active Substance: SENNOSIDES A AND B
     Indication: CONSTIPATION
     Dosage: 12 MG, 1X/DAY
     Route: 048
  14. ISOBIDE [Concomitant]
     Active Substance: ISOSORBIDE
     Indication: DIZZINESS
     Dosage: 140 ML, 2X/DAY
     Route: 048

REACTIONS (8)
  - Herpes zoster [Unknown]
  - Amnesia [Recovering/Resolving]
  - Speech disorder [Unknown]
  - Anal incontinence [Unknown]
  - Communication disorder [Recovering/Resolving]
  - Agitation [Recovering/Resolving]
  - Anger [Unknown]
  - Cognitive disorder [Recovering/Resolving]

NARRATIVE: CASE EVENT DATE: 20151018
